FAERS Safety Report 8859149 (Version 1)
Quarter: 2012Q4

REPORT INFORMATION
  Report Type: Spontaneous
  Country: US (occurrence: None)
  Receive Date: 20121024
  Receipt Date: 20121024
  Transmission Date: 20130627
  Serious: Yes (Hospitalization)
  Sender: FDA-Public Use
  Company Number: None

PATIENT
  Age: 69 Year
  Sex: Female
  Weight: 86.2 kg

DRUGS (2)
  1. FOSAPREPITANT [Suspect]
     Indication: PANCREATIC CANCER
     Dosage: 150 mg every 2 weeks IV
     Route: 042
     Dates: start: 20120905, end: 20120919
  2. FOLFIRINOX [Suspect]
     Dates: start: 20120905, end: 20120919

REACTIONS (3)
  - Gastrointestinal haemorrhage [None]
  - Asthenia [None]
  - Fatigue [None]
